FAERS Safety Report 15531886 (Version 2)
Quarter: 2018Q4

REPORT INFORMATION
  Report Type: Report from Study
  Country: US (occurrence: US)
  Receive Date: 20181019
  Receipt Date: 20181121
  Transmission Date: 20190205
  Serious: Yes (Hospitalization)
  Sender: FDA-Public Use
  Company Number: US-ROCHE-2202138

PATIENT
  Age: 67 Year
  Sex: Male

DRUGS (10)
  1. MESNA. [Suspect]
     Active Substance: MESNA
     Indication: ACUTE LYMPHOCYTIC LEUKAEMIA
     Dosage: 300MG/M2 IV (INTRAVENOUS) DAILY OVER 24 HOURS FOR 3 DAYS ON DAYS 1-3- REGIMEN A
     Route: 042
  2. CYTARABINE. [Suspect]
     Active Substance: CYTARABINE
     Indication: ACUTE LYMPHOCYTIC LEUKAEMIA
     Dosage: 0.5 G/M2 IV OVER 3 HOURS TWICE A DAY X 4 DOSES ON DAYS 2 AND 3
     Route: 042
  3. DEXAMETHASONE. [Suspect]
     Active Substance: DEXAMETHASONE
     Indication: ACUTE LYMPHOCYTIC LEUKAEMIA
     Dosage: DEXAMETHASONE 20MG IV DAILY FOR 4 DAYS ON DAYS 1-4 AND DAYS 11-14
     Route: 042
  4. RITUXIMAB. [Suspect]
     Active Substance: RITUXIMAB
     Indication: ACUTE LYMPHOCYTIC LEUKAEMIA
     Dosage: 375 MG/M2 BY VEIN ON DAY 2 AND DAY 8 OF CYCLES 1 AND 3, AND CYCLES 2 AND 4.
     Route: 042
  5. INOTUZUMAB OZOGAMICIN [Suspect]
     Active Substance: INOTUZUMAB OZOGAMICIN
     Indication: ACUTE LYMPHOCYTIC LEUKAEMIA
     Dosage: PHASE 1: 1.3 MG/M2 BY VEIN OVER 1 HOUR ON DAY 3 OF THE FIRST CYCLE, THEN 0.8 MG/M2 BY VEIN.?PHASE 2:
     Route: 042
     Dates: start: 20180516
  6. PEGFILGRASTIM [Suspect]
     Active Substance: PEGFILGRASTIM
     Indication: ACUTE LYMPHOCYTIC LEUKAEMIA
     Dosage: 6 MG SUBCUTANEOUSLY ON DAY 4 OF CYCLES 1, 3, 7, AND 9, AND CYCLES 2, 4, 8, AND 10.
     Route: 058
  7. VINCRISTINE SULPHATE [Suspect]
     Active Substance: VINCRISTINE SULFATE
     Indication: ACUTE LYMPHOCYTIC LEUKAEMIA
     Dosage: 2 MG BY VEIN ON DAY 1 AND DAY 8 OF CYCLES 1, 3, 7, AND 9.
     Route: 042
  8. METHOTREXATE SODIUM. [Suspect]
     Active Substance: METHOTREXATE SODIUM
     Indication: ACUTE LYMPHOCYTIC LEUKAEMIA
     Dosage: METHOTREXATE 50 MG/M2 BY VEIN FOLLOWED BY 200 MG/M2 CONTINUOUS INFUSION OVER APPROXIMATELY 22 HOURS
     Route: 042
  9. VINCRISTINE SULPHATE [Suspect]
     Active Substance: VINCRISTINE SULFATE
     Route: 042
  10. CYCLOPHOSPHAMIDE. [Suspect]
     Active Substance: CYCLOPHOSPHAMIDE
     Indication: ACUTE LYMPHOCYTIC LEUKAEMIA
     Dosage: 150MG/M2 IV OVER 3 HOURS TWICE A DAY ON DAYS 1-3 -REGIMEN A
     Route: 042

REACTIONS (1)
  - Colitis [Recovered/Resolved]

NARRATIVE: CASE EVENT DATE: 20180924
